FAERS Safety Report 16109705 (Version 1)
Quarter: 2019Q1

REPORT INFORMATION
  Report Type: Spontaneous
  Country: GR (occurrence: GR)
  Receive Date: 20190325
  Receipt Date: 20190325
  Transmission Date: 20190418
  Serious: No
  Sender: FDA-Public Use
  Company Number: GR-LUPIN PHARMACEUTICALS INC.-2019-00361

PATIENT
  Age: 76 Year
  Sex: Male

DRUGS (1)
  1. SILODOSIN. [Suspect]
     Active Substance: SILODOSIN
     Indication: BENIGN PROSTATIC HYPERPLASIA
     Dosage: 8 MG, QD
     Route: 065

REACTIONS (8)
  - Penile oedema [Unknown]
  - Penile blister [Unknown]
  - Fixed eruption [Unknown]
  - Burning sensation [Unknown]
  - Skin lesion [Recovered/Resolved]
  - Lip blister [Unknown]
  - Erythema [Unknown]
  - Lip oedema [Unknown]
